FAERS Safety Report 7661625-3 (Version None)
Quarter: 2011Q3

REPORT INFORMATION
  Report Type: 
  Country: None (occurrence: None)
  Receive Date: 20110805
  Receipt Date: 20101217
  Transmission Date: 20111222
  Serious: No
  Sender: FDA-Public Use
  Company Number: US-ABBOTT-10P-163-0686210-00

PATIENT
  Sex: Female
  Weight: 68.1 kg

DRUGS (11)
  1. NIASPAN [Suspect]
     Indication: PRODUCT USED FOR UNKNOWN INDICATION
     Dosage: 500MG EVERY NIGHT
     Route: 048
     Dates: start: 20091001, end: 20101001
  2. ASPIRIN [Concomitant]
     Indication: PREMEDICATION
     Dosage: 1 IN 1 DAY, 1/2 HOUR BEFORE NIASPAN
     Route: 048
  3. NIASPAN [Suspect]
     Route: 048
     Dates: start: 20101001
  4. LISINOPRIL [Concomitant]
     Indication: HYPERTENSION
  5. CRESTOR [Concomitant]
     Indication: BLOOD CHOLESTEROL INCREASED
  6. OTHER UNLISTED MEDICATIONS [Concomitant]
     Indication: PRODUCT USED FOR UNKNOWN INDICATION
  7. AMITIZA [Concomitant]
     Indication: CONSTIPATION
  8. SYNTHROID [Concomitant]
     Indication: HYPOTHYROIDISM
  9. NIASPAN [Suspect]
     Indication: BLOOD CHOLESTEROL INCREASED
     Dates: start: 20090101
  10. METFORMIN HCL [Concomitant]
     Indication: PRODUCT USED FOR UNKNOWN INDICATION
  11. TOPROL-XL [Concomitant]
     Indication: HYPERTENSION

REACTIONS (3)
  - PARAESTHESIA [None]
  - FLUSHING [None]
  - FEELING HOT [None]
